FAERS Safety Report 7671540-7 (Version None)
Quarter: 2011Q3

REPORT INFORMATION
  Report Type: 
  Country: None (occurrence: None)
  Receive Date: 20110809
  Receipt Date: 20110809
  Transmission Date: 20111222
  Serious: Yes (Other)
  Sender: FDA-Public Use
  Company Number: None

PATIENT
  Age: 39 Year
  Sex: Female
  Weight: 71.667 kg

DRUGS (1)
  1. CREST W/ FLUORIDE [Suspect]
     Indication: DENTAL DISORDER PROPHYLAXIS
     Dosage: PEA-SIZED AMOUNT
     Route: 004
     Dates: start: 20091101, end: 20110801

REACTIONS (2)
  - DERMATITIS [None]
  - NO THERAPEUTIC RESPONSE [None]
